FAERS Safety Report 4363935-4 (Version None)
Quarter: 2004Q2

REPORT INFORMATION
  Report Type: 
  Country: None (occurrence: None)
  Receive Date: 20040520
  Receipt Date: 20031015
  Transmission Date: 20050107
  Serious: No
  Sender: FDA-Public Use
  Company Number: 2003-06241

PATIENT
  Age: 49 Year
  Sex: Male
  Weight: 99.7913 kg

DRUGS (4)
  1. HEPSERA [Suspect]
     Indication: HEPATITIS B
     Dosage: 10 MG, ONCE A DAY,ORAL
     Route: 048
     Dates: start: 20030601
  2. METFORMIN HCL [Concomitant]
  3. ALDACTONE [Concomitant]
  4. LASIX [Concomitant]

REACTIONS (2)
  - OEDEMA [None]
  - RASH [None]
